FAERS Safety Report 8969402 (Version 1)
Quarter: 2012Q4

REPORT INFORMATION
  Report Type: 
  Country: US (occurrence: US)
  Receive Date: 20121218
  Receipt Date: 20121218
  Transmission Date: 20130627
  Serious: No
  Sender: FDA-Public Use
  Company Number: US-BRISTOL-MYERS SQUIBB COMPANY-16640377

PATIENT
  Age: 65 Year
  Sex: Female

DRUGS (12)
  1. ABILIFY [Suspect]
     Indication: BORDERLINE PERSONALITY DISORDER
     Dosage: 2mg daily on 25May2012
dose  decreased
     Dates: start: 2007, end: 201205
  2. ABILIFY [Suspect]
     Indication: BIPOLAR DISORDER
     Dosage: 2mg daily on 25May2012
dose  decreased
     Dates: start: 2007, end: 201205
  3. ABILIFY [Suspect]
     Indication: ATTENTION DEFICIT/HYPERACTIVITY DISORDER
     Dosage: 2mg daily on 25May2012
dose  decreased
     Dates: start: 2007, end: 201205
  4. ABILIFY [Suspect]
     Indication: POST-TRAUMATIC STRESS DISORDER
     Dosage: 2mg daily on 25May2012
dose  decreased
     Dates: start: 2007, end: 201205
  5. PAXIL [Concomitant]
  6. DAYTRANA [Concomitant]
  7. LAMICTAL [Concomitant]
  8. PROVIGIL [Concomitant]
  9. LITHIUM [Concomitant]
  10. VESICARE [Concomitant]
  11. SIMVASTATIN [Concomitant]
  12. AMLODIPINE [Concomitant]

REACTIONS (1)
  - Tardive dyskinesia [Unknown]
